FAERS Safety Report 6697249-4 (Version None)
Quarter: 2010Q2

REPORT INFORMATION
  Report Type: 
  Country: None (occurrence: None)
  Receive Date: 20100426
  Receipt Date: 20100414
  Transmission Date: 20101027
  Serious: Yes (Other)
  Sender: FDA-Public Use
  Company Number: SE-PFIZER INC-2009307649

PATIENT
  Age: 70 Year
  Sex: Male

DRUGS (1)
  1. PREDNISOLON [Suspect]
     Indication: POLYMYALGIA RHEUMATICA

REACTIONS (1)
  - TENDON RUPTURE [None]
